FAERS Safety Report 23322302 (Version 2)
Quarter: 2024Q1

REPORT INFORMATION
  Report Type: Spontaneous
  Country: US (occurrence: US)
  Receive Date: 20231220
  Receipt Date: 20240223
  Transmission Date: 20240410
  Serious: No
  Sender: FDA-Public Use
  Company Number: US-TAKEDA-2023TUS120073

PATIENT
  Age: 77 Year

DRUGS (1)
  1. DEXILANT [Suspect]
     Active Substance: DEXLANSOPRAZOLE
     Indication: Barrett^s oesophagus
     Dosage: UNK
     Route: 065

REACTIONS (3)
  - Off label use [Unknown]
  - Incorrect product administration duration [Unknown]
  - No adverse event [Unknown]
